FAERS Safety Report 8599671-8 (Version None)
Quarter: 2012Q3

REPORT INFORMATION
  Report Type: 
  Country: None (occurrence: None)
  Receive Date: 20120816
  Receipt Date: 20120814
  Transmission Date: 20120928
  Serious: Yes (Other)
  Sender: FDA-Public Use
  Company Number: US-BAYER-2012-082330

PATIENT
  Age: 13 Year
  Sex: Female

DRUGS (2)
  1. DIPHENHYDRAMINE HCL [Suspect]
     Dosage: A LARGE AMOUNT, ONCE
     Route: 048
  2. BUPROPION HCL [Suspect]
     Dosage: A LARGE AMOUNT, ONCE
     Route: 048

REACTIONS (2)
  - HYPERTHERMIA [None]
  - AGITATION [None]
